FAERS Safety Report 7631780-X (Version None)
Quarter: 2011Q3

REPORT INFORMATION
  Report Type: 
  Country: None (occurrence: None)
  Receive Date: 20110725
  Receipt Date: 20110315
  Transmission Date: 20111222
  Serious: No
  Sender: FDA-Public Use
  Company Number: US-BRISTOL-MYERS SQUIBB COMPANY-15610033

PATIENT
  Sex: Male

DRUGS (1)
  1. COUMADIN [Suspect]
     Dates: start: 20110301

REACTIONS (4)
  - PAIN IN EXTREMITY [None]
  - HEART RATE INCREASED [None]
  - ABDOMINAL DISTENSION [None]
  - CHEST PAIN [None]
